FAERS Safety Report 8775573 (Version 2)
Quarter: 2017Q2

REPORT INFORMATION
  Report Type: Report from Study
  Country: CN (occurrence: CN)
  Receive Date: 20120910
  Receipt Date: 20170421
  Transmission Date: 20170830
  Serious: Yes (Death, Life-Threatening, Hospitalization, Other)
  Sender: FDA-Public Use
  Company Number: CN-BRISTOL-MYERS SQUIBB COMPANY-16917817

PATIENT
  Age: 53 Year
  Sex: Male
  Weight: 54 kg

DRUGS (22)
  1. PACLITAXEL. [Suspect]
     Active Substance: PACLITAXEL
     Indication: NON-SMALL CELL LUNG CANCER
     Dosage: MOST RECENT ON 23MAR12
     Route: 042
     Dates: start: 20120323
  2. OMEPRAZOL E [Concomitant]
     Active Substance: OMEPRAZOLE
     Indication: VOMITING
     Dosage: UNK
     Route: 065
     Dates: start: 20120322, end: 20120527
  3. OXYGEN. [Concomitant]
     Active Substance: OXYGEN
     Indication: CEREBRAL HAEMORRHAGE
     Dosage: UNK
     Route: 065
     Dates: start: 20120527, end: 20120527
  4. LOBELINE [Concomitant]
     Active Substance: LOBELINE
     Indication: CEREBRAL HAEMORRHAGE
     Dosage: UNK
     Route: 065
     Dates: start: 20120527, end: 20120527
  5. LENTINAN [Concomitant]
     Active Substance: LENTINAN
     Indication: PROPHYLAXIS
     Dosage: UNK
     Route: 065
     Dates: start: 20120504, end: 20120504
  6. MAGNESIUM [Concomitant]
     Active Substance: MAGNESIUM
     Indication: PRODUCT USED FOR UNKNOWN INDICATION
     Dosage: UNK
     Route: 042
     Dates: start: 20120504, end: 20120504
  7. DEXAMETHASONE. [Concomitant]
     Active Substance: DEXAMETHASONE
     Indication: CEREBRAL HAEMORRHAGE
     Dosage: UNK
     Route: 065
     Dates: start: 20120527, end: 20120527
  8. INDOMETHACIN. [Concomitant]
     Active Substance: INDOMETHACIN
     Indication: MUSCULOSKELETAL STIFFNESS
     Dosage: UNK
     Route: 065
     Dates: start: 20120504, end: 20120527
  9. DOMPERIDONE [Concomitant]
     Active Substance: DOMPERIDONE
     Indication: PRODUCT USED FOR UNKNOWN INDICATION
     Dosage: UNK
     Route: 065
     Dates: start: 20120322, end: 20120527
  10. DICYNONE [Concomitant]
     Active Substance: ETHAMSYLATE
     Indication: CEREBRAL HAEMORRHAGE
     Dosage: 27MAY-27MAY12-1D
     Route: 065
     Dates: start: 20120322, end: 20120522
  11. LIDOCAINE. [Concomitant]
     Active Substance: LIDOCAINE
     Indication: CEREBRAL HAEMORRHAGE
     Dosage: UNK
     Route: 065
     Dates: start: 20120527, end: 20120527
  12. RECOMBINANT HUMAN ERYTHROPOIETIN [Concomitant]
     Active Substance: ERYTHROPOIETIN
     Indication: PLATELET COUNT DECREASED
     Dosage: UNK
     Route: 042
     Dates: start: 20120522, end: 20120522
  13. PREDNISOLONE. [Concomitant]
     Active Substance: PREDNISOLONE
     Indication: PROPHYLAXIS
     Dosage: UNK
     Route: 065
     Dates: start: 20120522, end: 20120522
  14. DIPROPHYLLINE [Concomitant]
     Active Substance: DYPHYLLINE
     Indication: CEREBRAL HAEMORRHAGE
     Dosage: UNK
     Route: 065
     Dates: start: 20120527, end: 20120527
  15. ATROPINE. [Concomitant]
     Active Substance: ATROPINE
     Indication: CEREBRAL HAEMORRHAGE
     Dosage: UNK
     Route: 065
     Dates: start: 20120527, end: 20120527
  16. ADRENALINE [Concomitant]
     Active Substance: EPINEPHRINE
     Indication: CEREBRAL HAEMORRHAGE
     Dosage: UNK
     Route: 065
     Dates: start: 20120527, end: 20120527
  17. FRUCTOSE [Concomitant]
     Active Substance: FRUCTOSE
     Indication: PROPHYLAXIS
     Dosage: UNK
     Route: 042
     Dates: start: 20120504, end: 20120504
  18. NIKETHAMIDE [Concomitant]
     Active Substance: NIKETHAMIDE
     Indication: CEREBRAL HAEMORRHAGE
     Dosage: UNK
     Route: 065
     Dates: start: 20120527, end: 20120527
  19. CARBOPLATIN. [Suspect]
     Active Substance: CARBOPLATIN
     Indication: NON-SMALL CELL LUNG CANCER
     Dosage: 630 MG, Q3WK
     Route: 042
     Dates: start: 20120323
  20. RAMOSETRON HCL [Concomitant]
     Indication: VOMITING
     Dosage: UNK
     Route: 042
     Dates: start: 20120504, end: 20120504
  21. THYMOSIN ALPHA-1 [Concomitant]
     Indication: PRODUCT USED FOR UNKNOWN INDICATION
     Dosage: UNK
     Route: 065
     Dates: start: 20120504, end: 20120527
  22. MANNITOL. [Concomitant]
     Active Substance: MANNITOL
     Indication: CEREBRAL HAEMORRHAGE
     Dosage: UNK
     Route: 065
     Dates: start: 20120527, end: 20120527

REACTIONS (2)
  - Cerebral haemorrhage [Fatal]
  - Thrombocytopenia [Fatal]

NARRATIVE: CASE EVENT DATE: 20120517
